FAERS Safety Report 17032876 (Version 1)
Quarter: 2019Q4

REPORT INFORMATION
  Report Type: Spontaneous
  Country: US (occurrence: US)
  Receive Date: 20191114
  Receipt Date: 20191114
  Transmission Date: 20200122
  Serious: Yes (Other)
  Sender: FDA-Public Use
  Company Number: US-PFIZER INC-2019491477

PATIENT
  Age: 72 Year
  Sex: Male
  Weight: 83.86 kg

DRUGS (3)
  1. XANAX [Suspect]
     Active Substance: ALPRAZOLAM
     Indication: NEURALGIA
     Dosage: 18 A DAY
  2. XANAX [Suspect]
     Active Substance: ALPRAZOLAM
     Dosage: 2 MG, 3X/DAY
  3. XANAX [Suspect]
     Active Substance: ALPRAZOLAM
     Dosage: 1 MG, 3X/DAY

REACTIONS (3)
  - Off label use [Unknown]
  - Drug dependence [Not Recovered/Not Resolved]
  - Product use in unapproved indication [Unknown]
